FAERS Safety Report 7363473-0 (Version None)
Quarter: 2011Q1

REPORT INFORMATION
  Report Type: 
  Country: None (occurrence: None)
  Receive Date: 20110321
  Receipt Date: 20110310
  Transmission Date: 20110831
  Serious: Yes (Hospitalization)
  Sender: FDA-Public Use
  Company Number: GB-RANBAXY-2011R1-42972

PATIENT
  Sex: Female

DRUGS (3)
  1. BETAMETHASONE DIPROPIONATE [Suspect]
     Indication: PRENATAL CARE
     Dosage: 12 MG, 1 /DAYS
     Route: 064
  2. INSULIN [Suspect]
     Indication: GESTATIONAL DIABETES
     Dosage: 8 DF, 1 /DAYS
     Route: 064
  3. METFORMIN [Suspect]
     Indication: GESTATIONAL DIABETES
     Dosage: 500 MG, 3 /DAYS
     Route: 064

REACTIONS (2)
  - HYPOGLYCAEMIA NEONATAL [None]
  - DRUG EXPOSURE DURING PREGNANCY [None]
